FAERS Safety Report 10071971 (Version 8)
Quarter: 2015Q1

REPORT INFORMATION
  Report Type: Spontaneous
  Country: BR (occurrence: BR)
  Receive Date: 20140411
  Receipt Date: 20150112
  Transmission Date: 20150720
  Serious: Yes (Disabling, Other)
  Sender: FDA-Public Use
  Company Number: BR-ROCHE-1374743

PATIENT
  Age: 41 Year
  Sex: Male
  Weight: 64 kg

DRUGS (7)
  1. ZELBORAF [Suspect]
     Active Substance: VEMURAFENIB
     Indication: METASTATIC MALIGNANT MELANOMA
     Route: 048
     Dates: start: 20131121, end: 20131206
  2. ZELBORAF [Suspect]
     Active Substance: VEMURAFENIB
     Dosage: 720 MG IN THE MORNING AND 480 MG AT NIGHT
     Route: 048
     Dates: start: 20140316
  3. ZELBORAF [Suspect]
     Active Substance: VEMURAFENIB
     Route: 048
     Dates: start: 20131223, end: 20140124
  4. ZELBORAF [Suspect]
     Active Substance: VEMURAFENIB
     Route: 048
     Dates: start: 20140124, end: 20140316
  5. ZELBORAF [Suspect]
     Active Substance: VEMURAFENIB
     Route: 048
  6. ZELBORAF [Suspect]
     Active Substance: VEMURAFENIB
     Dosage: DIVIDED INTO TWO ADMINISTRATIONS?4 TABLETS IN THE MORNING AND 3 TABLETS AT NIGHT?4 CYCLES RECIEVED.
     Route: 048
     Dates: start: 20140509
  7. ZELBORAF [Suspect]
     Active Substance: VEMURAFENIB
     Route: 048

REACTIONS (7)
  - Rash [Recovered/Resolved]
  - Pruritus [Unknown]
  - Skin reaction [Recovered/Resolved]
  - Vision blurred [Recovering/Resolving]
  - Myalgia [Recovered/Resolved]
  - Ocular hyperaemia [Recovering/Resolving]
  - Arthralgia [Not Recovered/Not Resolved]

NARRATIVE: CASE EVENT DATE: 20131206
